FAERS Safety Report 11388808 (Version 2)
Quarter: 2015Q4

REPORT INFORMATION
  Report Type: Spontaneous
  Country: CO (occurrence: CO)
  Receive Date: 20150817
  Receipt Date: 20151020
  Transmission Date: 20160304
  Serious: Yes (Other)
  Sender: FDA-Public Use
  Company Number: CO-SHIRE-CO201510372

PATIENT
  Age: 52 Year
  Sex: Female
  Weight: 50 kg

DRUGS (1)
  1. VPRIV [Suspect]
     Active Substance: VELAGLUCERASE ALFA
     Indication: GAUCHER^S DISEASE
     Dosage: 400 IU (8 VIALS), UNKNOWN
     Route: 041

REACTIONS (8)
  - Dizziness [Unknown]
  - Infusion related reaction [Unknown]
  - Influenza like illness [Unknown]
  - Malaise [Unknown]
  - Headache [Unknown]
  - Pyrexia [Unknown]
  - Syncope [Recovered/Resolved]
  - Nasopharyngitis [Recovered/Resolved]

NARRATIVE: CASE EVENT DATE: 20150811
